FAERS Safety Report 7888483-6 (Version None)
Quarter: 2011Q4

REPORT INFORMATION
  Report Type: 
  Country: None (occurrence: None)
  Receive Date: 20111103
  Receipt Date: 20111028
  Transmission Date: 20120403
  Serious: Yes (Hospitalization, Other)
  Sender: FDA-Public Use
  Company Number: PHHY2011US56647

PATIENT
  Sex: Male

DRUGS (5)
  1. GILENYA [Suspect]
     Indication: MULTIPLE SCLEROSIS RELAPSE
     Dosage: 0.5 MG, QD
     Route: 048
     Dates: start: 20101228
  2. GILENYA [Suspect]
     Dosage: 0.5 MG, QD
     Route: 048
     Dates: start: 20110623
  3. FLOMAX [Concomitant]
     Indication: URINARY RETENTION
     Dosage: 0.4 MG, QHS
     Route: 048
     Dates: start: 20110426
  4. CYMBALTA [Concomitant]
     Indication: DEPRESSION
     Dosage: 60 MG, QD
     Route: 048
  5. XANAX [Concomitant]
     Dosage: 0.25 MG, UNK

REACTIONS (5)
  - RHABDOMYOLYSIS [None]
  - BAND SENSATION [None]
  - BLOOD CREATINE PHOSPHOKINASE INCREASED [None]
  - CHEST PAIN [None]
  - URINARY RETENTION [None]
